FAERS Safety Report 9512250 (Version 2)
Quarter: 2014Q2

REPORT INFORMATION
  Report Type: Report from Study
  Country: MX (occurrence: MX)
  Receive Date: 20130910
  Receipt Date: 20140410
  Transmission Date: 20141212
  Serious: Yes (Other)
  Sender: FDA-Public Use
  Company Number: PHHY2013MX099445

PATIENT
  Age: 66 Year
  Sex: Female

DRUGS (1)
  1. TEGRETOL-XR [Suspect]
     Indication: TRIGEMINAL NEURALGIA
     Dosage: 3 DF, QD
     Route: 048
     Dates: start: 200809, end: 201403

REACTIONS (4)
  - Hypertension [Not Recovered/Not Resolved]
  - Vertigo [Recovering/Resolving]
  - Dizziness [Recovering/Resolving]
  - Hearing impaired [Not Recovered/Not Resolved]
